FAERS Safety Report 5707022-9 (Version None)
Quarter: 2008Q2

REPORT INFORMATION
  Report Type: 
  Country: None (occurrence: None)
  Receive Date: 20080416
  Receipt Date: 20080409
  Transmission Date: 20081010
  Serious: Yes (Other)
  Sender: FDA-Public Use
  Company Number: A0721880A

PATIENT
  Sex: Female

DRUGS (1)
  1. VERAMYST [Suspect]
     Indication: SEASONAL ALLERGY
     Route: 045
     Dates: start: 20080328, end: 20080403

REACTIONS (1)
  - CONVULSION [None]
